FAERS Safety Report 8546635-6 (Version None)
Quarter: 2012Q3

REPORT INFORMATION
  Report Type: 
  Country: None (occurrence: None)
  Receive Date: 20120727
  Receipt Date: 20120723
  Transmission Date: 20120928
  Serious: Yes (Hospitalization, Other)
  Sender: FDA-Public Use
  Company Number: US-009507513-1207USA010254

PATIENT

DRUGS (5)
  1. VICTOZA [Suspect]
     Dosage: 1.2 UNK, UNK
     Route: 058
  2. VICTOZA [Suspect]
     Dosage: 0.6 MG, QD
     Route: 058
  3. JANUVIA [Suspect]
     Route: 048
  4. GLYBURIDE [Suspect]
     Route: 048
  5. VICTOZA [Suspect]
     Dosage: 0.9 UNK, UNK
     Route: 058

REACTIONS (7)
  - HYPERBILIRUBINAEMIA [None]
  - ALANINE AMINOTRANSFERASE INCREASED [None]
  - BLOOD ALKALINE PHOSPHATASE INCREASED [None]
  - CHOLECYSTITIS CHRONIC [None]
  - CHOLELITHIASIS [None]
  - ASPARTATE AMINOTRANSFERASE INCREASED [None]
  - DRUG INTERACTION [None]
